FAERS Safety Report 19242770 (Version 1)
Quarter: 2021Q2

REPORT INFORMATION
  Report Type: Spontaneous
  Country: US (occurrence: US)
  Receive Date: 20210511
  Receipt Date: 20210511
  Transmission Date: 20210717
  Serious: Yes (Death, Other)
  Sender: FDA-Public Use
  Company Number: US-PURDUE-USA-2021-0255337

PATIENT
  Sex: Male

DRUGS (2)
  1. HYDROCODONE BITARTRATE AND ACETAMINOPHEN [Suspect]
     Active Substance: ACETAMINOPHEN\HYDROCODONE BITARTRATE
     Indication: PAIN
     Dosage: UNKNOWN
     Route: 048
  2. TRAMADOL CR TABLETS (RHODES 21?745) [Suspect]
     Active Substance: TRAMADOL
     Indication: PAIN
     Dosage: UNK
     Route: 048

REACTIONS (13)
  - Overdose [Unknown]
  - Developmental delay [Unknown]
  - Pain [Unknown]
  - Emotional distress [Unknown]
  - Amnesia [Unknown]
  - Learning disability [Unknown]
  - Cardiac disorder [Unknown]
  - Drug dependence [Unknown]
  - Diabetic ketoacidosis [Fatal]
  - Anxiety [Unknown]
  - Constipation [Unknown]
  - Abnormal behaviour [Unknown]
  - Delusional disorder, persecutory type [Unknown]
